FAERS Safety Report 9070917 (Version 1)
Quarter: 2013Q1

REPORT INFORMATION
  Report Type: Spontaneous
  Country: US (occurrence: US)
  Receive Date: 20130129
  Receipt Date: 20130129
  Transmission Date: 20140127
  Serious: Yes (Hospitalization)
  Sender: FDA-Public Use
  Company Number: US-GLAXOSMITHKLINE-A1009642A

PATIENT
  Sex: Female

DRUGS (2)
  1. WELLBUTRIN [Suspect]
  2. UNSPECIFIED ANTIBIOTIC [Suspect]

REACTIONS (2)
  - Loss of consciousness [Unknown]
  - Drug interaction [Unknown]
